FAERS Safety Report 6863428-6 (Version None)
Quarter: 2010Q3

REPORT INFORMATION
  Report Type: 
  Country: None (occurrence: None)
  Receive Date: 20100721
  Receipt Date: 20100709
  Transmission Date: 20110219
  Serious: Yes (Other)
  Sender: FDA-Public Use
  Company Number: BR-PFIZER INC-2010086313

PATIENT
  Age: 51 Year
  Sex: Male
  Weight: 68 kg

DRUGS (3)
  1. LYRICA [Suspect]
     Indication: CERVICAL CORD COMPRESSION
     Dosage: 75 MG, 2X/DAY, 1 CAPSULE (EVERY 12 HOURS)
     Route: 048
     Dates: start: 20100708, end: 20100710
  2. LYRICA [Suspect]
     Indication: PAIN
  3. ULTRACET [Concomitant]
     Indication: PAIN
     Dosage: UNK
     Dates: start: 20100708

REACTIONS (10)
  - DIZZINESS [None]
  - GAIT DISTURBANCE [None]
  - HEAD DISCOMFORT [None]
  - HEADACHE [None]
  - HYPOAESTHESIA [None]
  - HYPOAESTHESIA ORAL [None]
  - MALAISE [None]
  - NAUSEA [None]
  - SEDATION [None]
  - SOMNOLENCE [None]
